FAERS Safety Report 17640382 (Version 1)
Quarter: 2020Q2

REPORT INFORMATION
  Report Type: Spontaneous
  Country: DE (occurrence: DE)
  Receive Date: 20200407
  Receipt Date: 20200407
  Transmission Date: 20200713
  Serious: Yes (Other)
  Sender: FDA-Public Use
  Company Number: DE-BAYER-2020-054243

PATIENT
  Age: 42 Year
  Sex: Female
  Weight: 66 kg

DRUGS (1)
  1. KYLEENA [Suspect]
     Active Substance: LEVONORGESTREL
     Dosage: 17.5 ?G PER DAY CONTINUOUSLY
     Route: 015
     Dates: start: 20200304

REACTIONS (10)
  - Scarlet fever [None]
  - Rash pruritic [None]
  - Abdominal pain lower [Not Recovered/Not Resolved]
  - Malaise [None]
  - Oropharyngeal pain [None]
  - Burning sensation [None]
  - Procedural pain [Recovered/Resolved]
  - Face oedema [None]
  - Angioedema [None]
  - Vaginal haemorrhage [None]

NARRATIVE: CASE EVENT DATE: 202003
